FAERS Safety Report 5755904-4 (Version None)
Quarter: 2008Q2

REPORT INFORMATION
  Report Type: 
  Country: None (occurrence: None)
  Receive Date: 20080602
  Receipt Date: 20080521
  Transmission Date: 20081010
  Serious: Yes (Life-Threatening, Hospitalization, Other)
  Sender: FDA-Public Use
  Company Number: DE-ELI_LILLY_AND_COMPANY-DE200805004782

PATIENT
  Sex: Female
  Weight: 70 kg

DRUGS (2)
  1. EVISTA [Suspect]
     Indication: OSTEOPOROSIS
     Dosage: 60 MG, DAILY (1/D)
     Route: 048
     Dates: start: 20080214
  2. BONIVA [Concomitant]
     Dosage: UNK, UNK
     Dates: start: 20080126

REACTIONS (1)
  - ATRIAL FIBRILLATION [None]
